FAERS Safety Report 5339134-6 (Version None)
Quarter: 2007Q2

REPORT INFORMATION
  Report Type: 
  Country: None (occurrence: None)
  Receive Date: 20070530
  Receipt Date: 20070518
  Transmission Date: 20071010
  Serious: Yes (Other)
  Sender: FDA-Public Use
  Company Number: AU-PFIZER INC-2007041317

PATIENT
  Age: 74 Year
  Sex: Male

DRUGS (2)
  1. LIPITOR [Suspect]
  2. LAMISIL [Interacting]
     Indication: TRICHOPHYTON INFECTION

REACTIONS (3)
  - DRUG INTERACTION [None]
  - GLOMERULOSCLEROSIS [None]
  - NEPHROSCLEROSIS [None]
